FAERS Safety Report 22526114 (Version 1)
Quarter: 2023Q2

REPORT INFORMATION
  Report Type: Spontaneous
  Country: KR (occurrence: KR)
  Receive Date: 20230606
  Receipt Date: 20230606
  Transmission Date: 20230721
  Serious: Yes (Other)
  Sender: FDA-Public Use
  Company Number: KR-ORGANON-O2306KOR000083

PATIENT
  Sex: Male

DRUGS (3)
  1. COZAAR [Suspect]
     Active Substance: LOSARTAN POTASSIUM
     Indication: Blood pressure measurement
     Dosage: UNK
  2. ASPIRIN [Suspect]
     Active Substance: ASPIRIN
     Indication: Product used for unknown indication
     Dosage: UNK
  3. FUROSEMIDE [Concomitant]
     Active Substance: FUROSEMIDE
     Dosage: UNK

REACTIONS (20)
  - Weight decreased [Recovering/Resolving]
  - Arrhythmia [Unknown]
  - Cardiac disorder [Unknown]
  - Feeling cold [Unknown]
  - Pulmonary arterial pressure increased [Not Recovered/Not Resolved]
  - Pain in extremity [Unknown]
  - Dyspnoea [Recovered/Resolved]
  - Blood pressure increased [Unknown]
  - Arthralgia [Unknown]
  - Gout [Recovered/Resolved]
  - Palpitations [Unknown]
  - Underdose [Unknown]
  - Diarrhoea [Unknown]
  - Pain in jaw [Unknown]
  - Weight fluctuation [Unknown]
  - Dyspepsia [Unknown]
  - Pain [Unknown]
  - Headache [Recovered/Resolved]
  - Dizziness [Unknown]
  - Gingival bleeding [Unknown]
